FAERS Safety Report 10420584 (Version 1)
Quarter: 2014Q3

REPORT INFORMATION
  Report Type: Spontaneous
  Country: US (occurrence: None)
  Receive Date: 20140714
  Receipt Date: 20140714
  Transmission Date: 20150326
  Serious: No
  Sender: FDA-Public Use
  Company Number: 2014US003288

PATIENT
  Age: 30 Year
  Sex: Female

DRUGS (1)
  1. ICLUSIG [Suspect]
     Active Substance: PONATINIB
     Indication: CHRONIC MYELOID LEUKAEMIA
     Route: 048
     Dates: start: 20140128

REACTIONS (7)
  - Fatigue [None]
  - Nausea [None]
  - Dyspepsia [None]
  - Headache [None]
  - Dry skin [None]
  - Decreased appetite [None]
  - Chest discomfort [None]
